FAERS Safety Report 4936658-8 (Version None)
Quarter: 2006Q1

REPORT INFORMATION
  Report Type: 
  Country: None (occurrence: None)
  Receive Date: 20060302
  Receipt Date: 20060220
  Transmission Date: 20060701
  Serious: Yes (Hospitalization)
  Sender: FDA-Public Use
  Company Number: 2005BI011433

PATIENT
  Age: 59 Year
  Sex: Female

DRUGS (17)
  1. AVONEX [Suspect]
     Indication: MULTIPLE SCLEROSIS
     Dosage: 30 UG;QW;IM
     Route: 030
     Dates: start: 20000518, end: 20031103
  2. AVONEX [Suspect]
     Indication: MULTIPLE SCLEROSIS
     Dosage: 30 UG;QW;IM
     Route: 030
     Dates: start: 20031110
  3. DYAZIDE [Concomitant]
  4. KLONOPIN [Concomitant]
  5. LEXAPRO [Concomitant]
  6. SEROQUEL [Concomitant]
  7. CLARITIN [Concomitant]
  8. LORTAB [Concomitant]
  9. WELLBUTRIN SR [Concomitant]
  10. DETROL LA [Concomitant]
  11. MIRAPEX [Concomitant]
  12. CALCIUM WITH VITAMIN D [Concomitant]
  13. OMEGA 3 [Concomitant]
  14. MULTI-VITAMIN [Concomitant]
  15. ASPIRIN [Concomitant]
  16. IBUPROFEN [Concomitant]
  17. MORPHINE SULFATE [Concomitant]

REACTIONS (10)
  - CHOLECYSTITIS [None]
  - CHOLELITHIASIS [None]
  - CLOSTRIDIUM COLITIS [None]
  - COLON CANCER [None]
  - DEHYDRATION [None]
  - HYPERSENSITIVITY [None]
  - INTESTINAL ADHESION LYSIS [None]
  - IRON DEFICIENCY ANAEMIA [None]
  - ORTHOSTATIC INTOLERANCE [None]
  - URINARY TRACT INFECTION [None]
